FAERS Safety Report 19614594 (Version 1)
Quarter: 2021Q3

REPORT INFORMATION
  Report Type: Spontaneous
  Country: US (occurrence: US)
  Receive Date: 20210727
  Receipt Date: 20210727
  Transmission Date: 20211014
  Serious: Yes (Other)
  Sender: FDA-Public Use
  Company Number: US-PFIZER INC-2021902309

PATIENT
  Age: 64 Year
  Sex: Female

DRUGS (1)
  1. XELJANZ [Suspect]
     Active Substance: TOFACITINIB CITRATE
     Dosage: UNK
     Dates: start: 202001

REACTIONS (8)
  - Low density lipoprotein increased [Unknown]
  - Blood cholesterol increased [Unknown]
  - Arthralgia [Unknown]
  - Pneumonia [Unknown]
  - Aspartate aminotransferase increased [Unknown]
  - Joint swelling [Unknown]
  - Liver function test increased [Unknown]
  - Alanine aminotransferase increased [Unknown]

NARRATIVE: CASE EVENT DATE: 202012
